FAERS Safety Report 10190339 (Version 1)
Quarter: 2014Q2

REPORT INFORMATION
  Report Type: Report from Study
  Country: GB (occurrence: GB)
  Receive Date: 20140522
  Receipt Date: 20140522
  Transmission Date: 20141212
  Serious: Yes (Death)
  Sender: FDA-Public Use
  Company Number: GB-BAXTER-2014BAX026101

PATIENT
  Sex: 0

DRUGS (6)
  1. CYCLOPHOSPHAMIDE INJECTION 1G [Suspect]
     Indication: NON-HODGKIN^S LYMPHOMA
     Route: 065
  2. RITUXIMAB [Suspect]
     Indication: NON-HODGKIN^S LYMPHOMA
     Route: 065
  3. DOXORUBICIN [Suspect]
     Indication: NON-HODGKIN^S LYMPHOMA
     Route: 065
  4. VINCRISTINE [Suspect]
     Indication: NON-HODGKIN^S LYMPHOMA
     Route: 065
  5. PREDNISONE [Suspect]
     Indication: NON-HODGKIN^S LYMPHOMA
     Route: 065
  6. METHOTREXATE [Suspect]
     Indication: NON-HODGKIN^S LYMPHOMA
     Route: 065

REACTIONS (1)
  - Death [Fatal]
